FAERS Safety Report 5318179-6 (Version None)
Quarter: 2007Q1

REPORT INFORMATION
  Report Type: 
  Country: None (occurrence: None)
  Receive Date: 20070201
  Receipt Date: 20060829
  Transmission Date: 20070707
  Serious: Yes (Hospitalization)
  Sender: FDA-Public Use
  Company Number: MEDI-0004578

PATIENT
  Age: 62 Year
  Sex: Female
  Weight: 66.6788 kg

DRUGS (18)
  1. ETHYOL [Suspect]
     Indication: CHEMOTHERAPY
     Dosage: 5 IN 1 WK, SUBCUTANEOUS
     Route: 058
     Dates: start: 20060504, end: 20060515
  2. ETHYOL [Suspect]
     Indication: RADIOTHERAPY
     Dosage: 5 IN 1 WK, SUBCUTANEOUS
     Route: 058
     Dates: start: 20060504, end: 20060515
  3. RADIATION THERAPY [Concomitant]
  4. CISPLATIN [Concomitant]
  5. ETOPOSIDE [Concomitant]
  6. LIPITOR [Concomitant]
  7. TOPROL-XL [Concomitant]
  8. PREMARIN [Concomitant]
  9. MULTIVITAMIN [Concomitant]
  10. ASCORBIC ACID [Concomitant]
  11. VITAMIN B COMPLEX (PYRIDOXINE HYDROCHLORIDE, THIAMINE HYDROCHLORIDE, R [Concomitant]
  12. CALCIUM (CALCIUM) [Concomitant]
  13. FLAXEED [Concomitant]
  14. GLUCOSAMINE CHONDROITIN (ASCORBIC ACID, MANGANESE, CHONDROITIN SULFATE [Concomitant]
  15. CITRUCEL (METHYLCELLULOSE) [Concomitant]
  16. TRIAMET/HCTZ [Concomitant]
  17. TRAMADOL HCL [Concomitant]
  18. POTASSIUM CHLORIDE [Concomitant]

REACTIONS (6)
  - HYPOTENSION [None]
  - INJECTION SITE ERYTHEMA [None]
  - NEUTROPENIA [None]
  - PYREXIA [None]
  - RASH GENERALISED [None]
  - SNEEZING [None]
